FAERS Safety Report 13661571 (Version 1)
Quarter: 2017Q2

REPORT INFORMATION
  Report Type: Spontaneous
  Country: US (occurrence: US)
  Receive Date: 20170616
  Receipt Date: 20170616
  Transmission Date: 20170830
  Serious: No
  Sender: FDA-Public Use
  Company Number: US-US WORLDMEDS, LLC-USW201608-000590

PATIENT
  Age: 70 Year
  Sex: Female
  Weight: 64.41 kg

DRUGS (10)
  1. APOKYN [Suspect]
     Active Substance: APOMORPHINE HYDROCHLORIDE
     Indication: PARKINSON^S DISEASE
     Route: 058
     Dates: start: 20160818
  2. XARELTO [Concomitant]
     Active Substance: RIVAROXABAN
  3. ROPINIROLE. [Concomitant]
     Active Substance: ROPINIROLE
  4. DONEPREZIL [Concomitant]
     Active Substance: DONEPEZIL HYDROCHLORIDE
  5. TIGAN [Concomitant]
     Active Substance: TRIMETHOBENZAMIDE HYDROCHLORIDE
  6. FLUTICASONE. [Concomitant]
     Active Substance: FLUTICASONE
  7. OXYBUTYNIN [Concomitant]
     Active Substance: OXYBUTYNIN
  8. ATORVASTATIN [Concomitant]
     Active Substance: ATORVASTATIN
  9. LEVO/CARBODOPA [Concomitant]
  10. SERTRALINE [Concomitant]
     Active Substance: SERTRALINE HYDROCHLORIDE

REACTIONS (2)
  - Orthostatic hypotension [Recovered/Resolved]
  - Yawning [Recovered/Resolved]

NARRATIVE: CASE EVENT DATE: 20160818
